FAERS Safety Report 26074302 (Version 1)
Quarter: 2025Q4

REPORT INFORMATION
  Report Type: Spontaneous
  Country: US (occurrence: US)
  Receive Date: 20251121
  Receipt Date: 20251121
  Transmission Date: 20260118
  Serious: No
  Sender: CSL BEHRING
  Company Number: US-CSL-10580

PATIENT
  Sex: Male

DRUGS (6)
  1. VELPHORO [Suspect]
     Active Substance: SUCROFERRIC OXYHYDROXIDE
     Dosage: 500 MG, QD
     Route: 065
     Dates: start: 202410
  2. VELPHORO [Suspect]
     Active Substance: SUCROFERRIC OXYHYDROXIDE
     Dosage: 500 MG, BID
     Route: 065
     Dates: start: 202411
  3. VELPHORO [Suspect]
     Active Substance: SUCROFERRIC OXYHYDROXIDE
     Dosage: 500 MG, QD
     Route: 065
     Dates: start: 202412
  4. LANTHANUM [Concomitant]
     Active Substance: LANTHANUM
     Dosage: 1500 MG (Q MEALS)
     Dates: start: 202410
  5. LANTHANUM [Concomitant]
     Active Substance: LANTHANUM
     Dosage: 1500 MG (Q MEALS)
     Dates: start: 202411
  6. LANTHANUM [Concomitant]
     Active Substance: LANTHANUM
     Dosage: 1500 MG (Q MEALS)
     Dates: start: 202412

REACTIONS (2)
  - Transferrin saturation increased [Recovering/Resolving]
  - Serum ferritin increased [Unknown]

NARRATIVE: CASE EVENT DATE: 20241101
